FAERS Safety Report 23885203 (Version 1)
Quarter: 2024Q2

REPORT INFORMATION
  Report Type: Spontaneous
  Country: CA (occurrence: None)
  Receive Date: 20240522
  Receipt Date: 20240522
  Transmission Date: 20240716
  Serious: Yes (Other)
  Sender: FDA-Public Use
  Company Number: CA-ROCHE-3395659

PATIENT
  Age: 81 Year
  Sex: Male

DRUGS (10)
  1. RITUXIMAB [Suspect]
     Active Substance: RITUXIMAB
     Indication: Mucous membrane pemphigoid
     Route: 042
  2. RITUXIMAB [Suspect]
     Active Substance: RITUXIMAB
     Route: 042
  3. RITUXIMAB [Suspect]
     Active Substance: RITUXIMAB
     Route: 042
  4. VALACYCLOVIR HYDROCHLORIDE [Concomitant]
     Active Substance: VALACYCLOVIR HYDROCHLORIDE
  5. SOTALOL [Concomitant]
     Active Substance: SOTALOL
  6. METHYLPREDNISOLONE [Concomitant]
     Active Substance: METHYLPREDNISOLONE
     Route: 042
  7. GABAPENTIN [Concomitant]
     Active Substance: GABAPENTIN
  8. DIPHENHYDRAMINE [Concomitant]
     Active Substance: DIPHENHYDRAMINE
     Route: 048
  9. ATORVASTATIN [Concomitant]
     Active Substance: ATORVASTATIN
     Route: 065
  10. ACETAMINOPHEN [Concomitant]
     Active Substance: ACETAMINOPHEN
     Route: 048

REACTIONS (13)
  - Hypertension [Recovering/Resolving]
  - Oropharyngeal pain [Recovering/Resolving]
  - Skin lesion [Recovering/Resolving]
  - Renal cancer [Recovering/Resolving]
  - Oropharyngeal discomfort [Recovering/Resolving]
  - Oral discomfort [Recovering/Resolving]
  - Ocular discomfort [Recovering/Resolving]
  - Choking [Recovering/Resolving]
  - Dysphagia [Recovering/Resolving]
  - General physical health deterioration [Recovering/Resolving]
  - Ocular pemphigoid [Recovering/Resolving]
  - Throat tightness [Recovering/Resolving]
  - Off label use [Unknown]
